FAERS Safety Report 4622962-X (Version None)
Quarter: 2005Q1

REPORT INFORMATION
  Report Type: 
  Country: None (occurrence: None)
  Receive Date: 20050330
  Receipt Date: 20050218
  Transmission Date: 20050727
  Serious: Yes (Hospitalization)
  Sender: FDA-Public Use
  Company Number: PHNR2005AU00572

PATIENT
  Age: 67 Year
  Sex: Male

DRUGS (5)
  1. CLOZARIL [Suspect]
     Dosage: 12 - 700 MG/DAY
     Dates: start: 20000609, end: 20050207
  2. CLOZARIL [Suspect]
     Dosage: 12 MG, QD
     Dates: start: 20050214
  3. LITHIUM [Suspect]
  4. CELEBREX [Suspect]
  5. SERTRALINE HCL [Suspect]

REACTIONS (2)
  - DRUG INTERACTION [None]
  - DRUG LEVEL INCREASED [None]
